FAERS Safety Report 6222558-2 (Version None)
Quarter: 2009Q2

REPORT INFORMATION
  Report Type: 
  Country: None (occurrence: None)
  Receive Date: 20090609
  Receipt Date: 20090528
  Transmission Date: 20091009
  Serious: Yes (Hospitalization)
  Sender: FDA-Public Use
  Company Number: 236054K09USA

PATIENT
  Age: 59 Year
  Sex: Male

DRUGS (7)
  1. REBIF [Suspect]
     Indication: MULTIPLE SCLEROSIS
     Dosage: 44 MCG, 3 IN 1 WEEKS, SUBCUTANEOUS
     Route: 058
     Dates: start: 20031226, end: 20090501
  2. HYDROCHLOROTHIAZIDE [Concomitant]
  3. ZOLOFT [Concomitant]
  4. LIPITOR [Concomitant]
  5. BACLOFEN [Concomitant]
  6. AMITRIPTYLINE HCL [Concomitant]
  7. DIAZEPAM [Concomitant]

REACTIONS (5)
  - ASTHENIA [None]
  - INCISION SITE PAIN [None]
  - INTESTINAL OBSTRUCTION [None]
  - VOLVULUS OF SMALL BOWEL [None]
  - WEIGHT DECREASED [None]
